FAERS Safety Report 8206631-5 (Version None)
Quarter: 2012Q1

REPORT INFORMATION
  Report Type: 
  Country: None (occurrence: None)
  Receive Date: 20120314
  Receipt Date: 20120305
  Transmission Date: 20120608
  Serious: Yes (Other)
  Sender: FDA-Public Use
  Company Number: IT-BIOGENIDEC-2012BI002344

PATIENT
  Age: 33 Year
  Sex: Female

DRUGS (2)
  1. TYSABRI [Suspect]
     Indication: RELAPSING-REMITTING MULTIPLE SCLEROSIS
     Route: 042
     Dates: start: 20110505
  2. MILVANE [Concomitant]
     Indication: ORAL CONTRACEPTION
     Dates: start: 20100115, end: 20120116

REACTIONS (2)
  - TRANSVERSE SINUS THROMBOSIS [None]
  - SENSORIMOTOR DISORDER [None]
